FAERS Safety Report 5866280-0 (Version None)
Quarter: 2008Q3

REPORT INFORMATION
  Report Type: 
  Country: None (occurrence: None)
  Receive Date: 20080829
  Receipt Date: 20080818
  Transmission Date: 20090109
  Serious: Yes (Other)
  Sender: FDA-Public Use
  Company Number: JP-PFIZER INC-2008071191

PATIENT
  Age: 72 Year
  Sex: Male

DRUGS (1)
  1. CHANTIX [Suspect]
     Indication: EX-TOBACCO USER
     Dosage: DAILY DOSE:1MG
     Dates: start: 20080804, end: 20080817

REACTIONS (5)
  - AGGRESSION [None]
  - AGITATION [None]
  - DYSPHORIA [None]
  - IRRITABILITY [None]
  - PERSONALITY CHANGE [None]
